FAERS Safety Report 6147544-2 (Version None)
Quarter: 2009Q2

REPORT INFORMATION
  Report Type: 
  Country: None (occurrence: None)
  Receive Date: 20090408
  Receipt Date: 20090330
  Transmission Date: 20091009
  Serious: Yes (Other)
  Sender: FDA-Public Use
  Company Number: US-SOLVAY-00209001861

PATIENT
  Age: 667 Month
  Sex: Male
  Weight: 74.09 kg

DRUGS (3)
  1. LISINOPRIL [Concomitant]
     Indication: HYPERTENSION
     Dosage: DAILY DOSE: 40 MILLIGRAM(S)
     Route: 048
  2. ANDROGEL [Suspect]
     Indication: ANDROGEN REPLACEMENT THERAPY
     Dosage: DAILY DOSE: 5 GRAM(S)
     Route: 062
     Dates: start: 20020101, end: 20090329
  3. UNKNOWN EYE DROPS [Concomitant]
     Indication: GLAUCOMA
     Dosage: DAILY DOSE:  UNKNOWN
     Route: 047

REACTIONS (2)
  - PELVIC NEOPLASM [None]
  - RENAL CANCER [None]
